FAERS Safety Report 10156437 (Version 1)
Quarter: 2014Q2

REPORT INFORMATION
  Report Type: Spontaneous
  Country: US (occurrence: None)
  Receive Date: 20140506
  Receipt Date: 20140506
  Transmission Date: 20141212
  Serious: Yes (Hospitalization)
  Sender: FDA-Public Use
  Company Number: None

PATIENT
  Age: 71 Year
  Sex: Female
  Weight: 112.49 kg

DRUGS (4)
  1. FENOFIBRATE [Suspect]
     Indication: BLOOD TRIGLYCERIDES INCREASED
     Dosage: 1  TABLET EVERY EVENING
     Route: 048
     Dates: start: 20140419
  2. ATENELOL [Concomitant]
  3. ASPIRIN [Concomitant]
  4. ALEVE [Concomitant]

REACTIONS (19)
  - Hair texture abnormal [None]
  - Alopecia [None]
  - Dyspnoea [None]
  - Back pain [None]
  - Dysstasia [None]
  - Insomnia [None]
  - Pain in extremity [None]
  - Hypoaesthesia [None]
  - Throat tightness [None]
  - Choking [None]
  - Dyspnoea [None]
  - Speech disorder [None]
  - Restlessness [None]
  - Myalgia [None]
  - Asthenia [None]
  - Anxiety [None]
  - Head injury [None]
  - Musculoskeletal pain [None]
  - Hypoaesthesia [None]
